FAERS Safety Report 19024968 (Version 1)
Quarter: 2021Q1

REPORT INFORMATION
  Report Type: Spontaneous
  Country: US (occurrence: US)
  Receive Date: 20210318
  Receipt Date: 20210318
  Transmission Date: 20210420
  Serious: Yes (Other)
  Sender: FDA-Public Use
  Company Number: US-CIPLA LTD.-2021US01955

PATIENT

DRUGS (4)
  1. DOCETAXEL. [Suspect]
     Active Substance: DOCETAXEL
     Indication: EPITHELIOID SARCOMA
  2. GEMCITABINE. [Suspect]
     Active Substance: GEMCITABINE
     Indication: EPITHELIOID SARCOMA
  3. DOCETAXEL. [Suspect]
     Active Substance: DOCETAXEL
     Indication: ANGIOSARCOMA
     Dosage: 100 MG/M2 ON DAY 8, EVERY 3 WEEKS
     Route: 065
  4. GEMCITABINE. [Suspect]
     Active Substance: GEMCITABINE
     Indication: ANGIOSARCOMA
     Dosage: 900 MG/M2 ON DAYS 1 + 8, EVERY 3 WEEKS
     Route: 065

REACTIONS (1)
  - Dermatitis [Unknown]
